FAERS Safety Report 16771176 (Version 1)
Quarter: 2019Q3

REPORT INFORMATION
  Report Type: Spontaneous
  Country: CN (occurrence: CN)
  Receive Date: 20190904
  Receipt Date: 20190904
  Transmission Date: 20191005
  Serious: Yes (Hospitalization)
  Sender: FDA-Public Use
  Company Number: PHHY2019CN201539

PATIENT
  Age: 30 Year
  Sex: Male

DRUGS (1)
  1. DEFERASIROX. [Suspect]
     Active Substance: DEFERASIROX
     Indication: IRON OVERLOAD
     Route: 048

REACTIONS (10)
  - Abdominal distension [Unknown]
  - Hepatic congestion [Unknown]
  - Dyspnoea paroxysmal nocturnal [Unknown]
  - Rales [Unknown]
  - Splenomegaly [Unknown]
  - Iron overload [Unknown]
  - Cardiomegaly [Unknown]
  - Cardiac failure congestive [Unknown]
  - Cardiogenic shock [Unknown]
  - Oedema peripheral [Unknown]
